FAERS Safety Report 17756462 (Version 1)
Quarter: 2020Q2

REPORT INFORMATION
  Report Type: Spontaneous
  Country: FR (occurrence: FR)
  Receive Date: 20200507
  Receipt Date: 20200507
  Transmission Date: 20200714
  Serious: Yes (Hospitalization)
  Sender: FDA-Public Use
  Company Number: FR-CADILA HEALTHCARE LIMITED-FR-ZYDUS-023388

PATIENT

DRUGS (12)
  1. NEULASTA [Suspect]
     Active Substance: PEGFILGRASTIM
     Indication: TUMOUR LYSIS SYNDROME
     Dosage: DOSE-UNKNOWN
     Route: 048
  2. ECONAZOLE. [Concomitant]
     Active Substance: ECONAZOLE NITRATE
  3. NEORECORMON [Concomitant]
     Active Substance: ERYTHROPOIETIN
     Dosage: UNK
     Route: 065
  4. BENDAMUSTINE HYDROCHLORIDE. [Suspect]
     Active Substance: BENDAMUSTINE HYDROCHLORIDE
     Indication: LYMPHOMA
     Dosage: 149 MILLIGRAM,149 MG, UNK
     Dates: start: 20180206, end: 20180206
  5. ALLOPURINOL. [Suspect]
     Active Substance: ALLOPURINOL
     Indication: TUMOUR LYSIS SYNDROME
     Dosage: 200 MILLIGRAM,200 MG, UNK,(INTERVAL :1 DAYS)
     Route: 048
     Dates: start: 20180206, end: 20180209
  6. MABTHERA [Suspect]
     Active Substance: RITUXIMAB
     Indication: LYMPHOMA
     Dosage: 623 MILLIGRAM,623 MG, UNK,(INTERVAL :1 TOTAL)
     Route: 065
     Dates: start: 20180206, end: 20180206
  7. NEULASTA [Suspect]
     Active Substance: PEGFILGRASTIM
     Indication: NEUTROPENIA
     Route: 058
     Dates: start: 20180209
  8. PRIMPERAN [Concomitant]
     Active Substance: METOCLOPRAMIDE HYDROCHLORIDE
  9. BACTRIM [Suspect]
     Active Substance: SULFAMETHOXAZOLE\TRIMETHOPRIM
     Indication: PROPHYLAXIS
     Dosage: UNK
     Route: 048
     Dates: start: 20180209, end: 20180219
  10. ZELITREX [Suspect]
     Active Substance: VALACYCLOVIR HYDROCHLORIDE
     Indication: PROPHYLAXIS
     Dosage: 1000 MILLIGRAM,1000 MG, UNK,(INTERVAL :1 DAYS)
     Route: 048
     Dates: start: 20180209, end: 20180219
  11. ROCEPHINE [Suspect]
     Active Substance: CEFTRIAXONE SODIUM
     Indication: NEUTROPENIA
     Dosage: 2 GRAM,2 MG,UNK,(INTERVAL :1 DAYS)
     Route: 042
     Dates: start: 20180209, end: 20180209
  12. GRANOCYTE [Concomitant]
     Active Substance: LENOGRASTIM

REACTIONS (4)
  - Hypersensitivity [Recovering/Resolving]
  - Hypotension [Recovered/Resolved]
  - Pyrexia [Recovered/Resolved]
  - Rash maculo-papular [Recovering/Resolving]

NARRATIVE: CASE EVENT DATE: 20180219
